FAERS Safety Report 7218815-3 (Version None)
Quarter: 2011Q1

REPORT INFORMATION
  Report Type: 
  Country: None (occurrence: None)
  Receive Date: 20110110
  Receipt Date: 20100528
  Transmission Date: 20110831
  Serious: No
  Sender: FDA-Public Use
  Company Number: US-ABBOTT-10P-163-0643591-00

PATIENT
  Sex: Male

DRUGS (4)
  1. LIPITOR [Concomitant]
     Indication: PRODUCT USED FOR UNKNOWN INDICATION
  2. BENICAR [Concomitant]
     Indication: PRODUCT USED FOR UNKNOWN INDICATION
  3. VALIUM [Concomitant]
     Indication: PRODUCT USED FOR UNKNOWN INDICATION
  4. VICODIN [Suspect]
     Indication: BACK PAIN
     Dosage: 5/500
     Dates: start: 20040101

REACTIONS (3)
  - PRODUCT COLOUR ISSUE [None]
  - PRODUCT SIZE ISSUE [None]
  - DRUG EFFECT DECREASED [None]
